FAERS Safety Report 9238090 (Version 2)
Quarter: 2013Q2

REPORT INFORMATION
  Report Type: Spontaneous
  Country: FR (occurrence: FR)
  Receive Date: 20130418
  Receipt Date: 20130423
  Transmission Date: 20140414
  Serious: Yes (Other)
  Sender: FDA-Public Use
  Company Number: FR-JNJFOC-20130407897

PATIENT
  Sex: Male

DRUGS (1)
  1. STELARA [Suspect]
     Indication: PRODUCT USED FOR UNKNOWN INDICATION
     Dosage: FOR ABOUT 18 MONTHS
     Route: 058

REACTIONS (3)
  - Skin mass [Unknown]
  - Nail pigmentation [Unknown]
  - Synovitis [Unknown]
